FAERS Safety Report 9831216 (Version 3)
Quarter: 2014Q1

REPORT INFORMATION
  Report Type: Spontaneous
  Country: US (occurrence: US)
  Receive Date: 20140121
  Receipt Date: 20140228
  Transmission Date: 20141002
  Serious: Yes (Hospitalization)
  Sender: FDA-Public Use
  Company Number: US-BEH-2012031793

PATIENT
  Age: 55 Year
  Sex: Female
  Weight: 99 kg

DRUGS (44)
  1. PRIVIGEN [Suspect]
     Indication: SYSTEMIC LUPUS ERYTHEMATOSUS
     Dosage: MAX RATE OF 454 ML PER HOUR
     Route: 042
     Dates: start: 20111122
  2. PRIVIGEN [Suspect]
     Route: 042
     Dates: start: 20111122, end: 20111122
  3. PRIVIGEN [Suspect]
     Route: 042
     Dates: start: 20111122, end: 20111122
  4. PRIVIGEN [Suspect]
     Indication: MULTIPLE SCLEROSIS
     Dosage: 5 GM VIAL; MAX RATE 454 ML/HR (151 DROPS/MIN)
     Route: 042
     Dates: start: 20111109
  5. PRIVIGEN [Suspect]
     Indication: HYPOGAMMAGLOBULINAEMIA
     Dosage: 20 GM VIAL
     Route: 042
     Dates: start: 20111109
  6. PRIVIGEN [Suspect]
     Route: 042
     Dates: start: 20120426, end: 20120426
  7. PRIVIGEN [Suspect]
     Route: 042
     Dates: start: 20120426, end: 20120426
  8. PRIVIGEN [Suspect]
     Dosage: 5 GM VIAL; 250 ML TOTAL;START SLOWLY INCREASE RATE TO MAX OF 454 ML/HR (151 GTTS/MIN).
     Route: 042
     Dates: start: 20120705, end: 20120705
  9. PRIVIGEN [Suspect]
     Dosage: 20 GM VIAL
     Route: 042
     Dates: start: 20120705, end: 20120705
  10. PRIVIGEN [Suspect]
     Dosage: 5 GM VIAL
     Route: 042
  11. PRIVIGEN [Suspect]
     Dosage: 10 GM VIAL
     Route: 042
  12. HUMALOG [Concomitant]
  13. PREDNISONE [Concomitant]
  14. AZATHIOPRINE [Concomitant]
  15. NITROSTAT [Concomitant]
  16. DIOVAN [Concomitant]
  17. POTASSIUM CL [Concomitant]
  18. LANTUS [Concomitant]
  19. ASPIRIN [Concomitant]
  20. FOLIC ACID [Concomitant]
  21. ISOSORBIDE MN [Concomitant]
  22. DILTIAZEM [Concomitant]
  23. CRESTOR [Concomitant]
  24. WARFARIN [Concomitant]
  25. ATELVIA [Concomitant]
  26. VITAMIN D [Concomitant]
  27. CALCIUM [Concomitant]
  28. PERCOCET [Concomitant]
  29. PLAVIX [Concomitant]
  30. PRILOSEC [Concomitant]
  31. LEVOXYL [Concomitant]
  32. SALAGEN [Concomitant]
  33. VITAMIN B [Concomitant]
  34. MORPHINE SULFATE IR [Concomitant]
  35. NEURONTIN [Concomitant]
  36. MORPHINE SULFATE CR [Concomitant]
  37. VITAMIN B 12 [Concomitant]
  38. DIPHENHYDRAMINE HYDROCHLORIDE [Concomitant]
     Indication: PREMEDICATION
  39. EPINEPHRINE [Concomitant]
     Indication: PREMEDICATION
  40. ACETAMINOPHEN [Concomitant]
  41. SODIUM CHLORIDE [Concomitant]
  42. HYDROCHLOROTHIAZIDE [Concomitant]
  43. BYETTA [Concomitant]
  44. HYDROCHLOROTHIAZIDE [Concomitant]

REACTIONS (9)
  - International normalised ratio increased [Unknown]
  - Fatigue [Unknown]
  - Headache [Recovering/Resolving]
  - Nephrolithiasis [Unknown]
  - Chest pain [Unknown]
  - Headache [Unknown]
  - Off label use [Unknown]
  - Bronchitis [Unknown]
  - Bone cyst [Recovered/Resolved]
